FAERS Safety Report 15034170 (Version 1)
Quarter: 2018Q2

REPORT INFORMATION
  Report Type: Report from Study
  Country: JP (occurrence: JP)
  Receive Date: 20180620
  Receipt Date: 20180620
  Transmission Date: 20180711
  Serious: Yes (Death)
  Sender: FDA-Public Use
  Company Number: JP-BEH-2018091924

PATIENT
  Age: 89 Year
  Sex: Female
  Weight: 51 kg

DRUGS (13)
  1. CARBAZOCHROME SODIUM SULFONATE [Concomitant]
     Active Substance: CARBAZOCHROME SODIUM SULFONATE
     Indication: HAEMOSTASIS
     Dosage: UNK
     Route: 065
     Dates: start: 20180403, end: 20180403
  2. TAKEPRON [Concomitant]
     Active Substance: LANSOPRAZOLE
     Dosage: UNK
     Route: 065
     Dates: start: 20180403, end: 20180407
  3. NESINA [Concomitant]
     Active Substance: ALOGLIPTIN BENZOATE
     Dosage: UNK
     Route: 048
     Dates: end: 20180403
  4. ALLOPURINOL. [Concomitant]
     Active Substance: ALLOPURINOL
     Dosage: UNK
     Route: 048
     Dates: end: 20180403
  5. FUROSEMIDE. [Concomitant]
     Active Substance: FUROSEMIDE
     Dosage: UNK
     Route: 048
     Dates: end: 20180403
  6. BERIPLEX P/N [Suspect]
     Active Substance: COAGULATION FACTOR IX HUMAN\COAGULATION FACTOR VII HUMAN\COAGULATION FACTOR X HUMAN\PROTEIN C\PROTEIN S HUMAN\PROTHROMBIN
     Indication: SURGERY
     Dosage: 1000 IU, UNK
     Route: 042
     Dates: start: 20180404
  7. WARFARIN [Concomitant]
     Active Substance: WARFARIN
     Indication: CEREBRAL INFARCTION
     Dosage: 1.5 MG, UNK
     Route: 048
     Dates: end: 20180403
  8. TRANEXAMIC [Concomitant]
     Indication: HAEMOSTASIS
     Dosage: UNK
     Route: 065
     Dates: start: 20180403, end: 20180403
  9. D-MANNITOL [Concomitant]
     Active Substance: MANNITOL
     Indication: INTRACRANIAL HYPOTENSION
     Dosage: UNK
     Route: 065
     Dates: start: 20180404, end: 20180404
  10. KAYTWO N [Concomitant]
     Active Substance: MENATETRENONE
     Dosage: UNK
     Route: 042
     Dates: start: 20180404, end: 20180404
  11. CLOPIDOGREL [Concomitant]
     Active Substance: CLOPIDOGREL BISULFATE
     Dosage: UNK
     Route: 048
     Dates: end: 20180403
  12. CEFAZOLINA [Concomitant]
     Active Substance: CEFAZOLIN SODIUM
     Dosage: UNK
     Route: 065
     Dates: start: 20180404, end: 20180406
  13. BAYASPIRIN [Concomitant]
     Active Substance: ASPIRIN
     Dosage: UNK
     Route: 048
     Dates: end: 20180403

REACTIONS (1)
  - Cerebral ischaemia [Fatal]

NARRATIVE: CASE EVENT DATE: 20180404
